FAERS Safety Report 7948237-9 (Version None)
Quarter: 2011Q4

REPORT INFORMATION
  Report Type: 
  Country: None (occurrence: None)
  Receive Date: 20111125
  Receipt Date: 20111114
  Transmission Date: 20120403
  Serious: Yes (Hospitalization, Other)
  Sender: FDA-Public Use
  Company Number: JPI-P-018260

PATIENT
  Age: 46 Year
  Sex: Female
  Weight: 117.9352 kg

DRUGS (14)
  1. XYREM [Suspect]
     Indication: CHRONIC FATIGUE SYNDROME
     Dosage: 4.5 GM (2.25 GM, 2 IN 2 D), ORAL
     Route: 048
     Dates: start: 20080821
  2. XYREM [Suspect]
     Indication: SOMNOLENCE
     Dosage: 7 GM (3.5 GM, 2 IN 1 D), ORAL; 6.5 GM (3.25 GM, 2 IN 1 D), ORAL
     Route: 048
     Dates: end: 20110101
  3. XYREM [Suspect]
     Indication: NARCOLEPSY
     Dosage: 7 GM (3.5 GM, 2 IN 1 D), ORAL; 6.5 GM (3.25 GM, 2 IN 1 D), ORAL
     Route: 048
     Dates: end: 20110101
  4. XYREM [Suspect]
     Indication: SOMNOLENCE
     Dosage: 7 GM (3.5 GM, 2 IN 1 D), ORAL; 6.5 GM (3.25 GM, 2 IN 1 D), ORAL
     Route: 048
     Dates: start: 20111109
  5. XYREM [Suspect]
     Indication: NARCOLEPSY
     Dosage: 7 GM (3.5 GM, 2 IN 1 D), ORAL; 6.5 GM (3.25 GM, 2 IN 1 D), ORAL
     Route: 048
     Dates: start: 20111109
  6. XYREM [Suspect]
     Indication: SOMNOLENCE
     Dosage: 7 GM (3.5 GM, 2 IN 1 D), ORAL; 6.5 GM (3.25 GM, 2 IN 1 D), ORAL
     Route: 048
     Dates: start: 20110829, end: 20111029
  7. XYREM [Suspect]
     Indication: NARCOLEPSY
     Dosage: 7 GM (3.5 GM, 2 IN 1 D), ORAL; 6.5 GM (3.25 GM, 2 IN 1 D), ORAL
     Route: 048
     Dates: start: 20110829, end: 20111029
  8. MOMETASONE FUROATE [Concomitant]
  9. FAMCICLOVIR [Concomitant]
  10. MONTELUKAST SODIUM [Concomitant]
  11. DIVALPROEX SODIUM [Concomitant]
  12. ESOMEPRAZOLE [Concomitant]
  13. METRONIDAZOLE GEL [Concomitant]
  14. ELETRIPTAN [Concomitant]

REACTIONS (5)
  - CARBOHYDRATE ANTIGEN 125 INCREASED [None]
  - URINARY TRACT INFECTION [None]
  - ENDOMETRIOSIS [None]
  - OVARIAN CYST [None]
  - URINARY INCONTINENCE [None]
